FAERS Safety Report 8167030-8 (Version None)
Quarter: 2012Q1

REPORT INFORMATION
  Report Type: 
  Country: None (occurrence: None)
  Receive Date: 20120227
  Receipt Date: 20120224
  Transmission Date: 20120608
  Serious: Yes (Hospitalization, Other)
  Sender: FDA-Public Use
  Company Number: US-PFIZER INC-2012049942

PATIENT
  Sex: Female
  Weight: 85 kg

DRUGS (8)
  1. PLAVIX [Concomitant]
     Dosage: 75 MG, 1X/DAY
  2. NORVASC [Suspect]
     Indication: CARDIAC DISORDER
     Dosage: 5 MG, 1X/DAY
     Route: 048
     Dates: start: 20080101
  3. CELEBREX [Suspect]
     Indication: ARTHROPATHY
     Dosage: 200 MG, 1X/DAY
     Route: 048
     Dates: start: 20100701
  4. XANAX [Concomitant]
     Dosage: UNK
  5. NEURONTIN [Suspect]
     Indication: CEREBROVASCULAR DISORDER
     Dosage: 100 MG, 3X/DAY
     Route: 048
     Dates: start: 20100201
  6. SIMVASTATIN [Concomitant]
     Indication: BLOOD CHOLESTEROL INCREASED
     Dosage: UNK
  7. METOPROLOL [Concomitant]
     Dosage: 25 MG, 2X/DAY
  8. NEXIUM [Concomitant]
     Dosage: 40 MG, UNK

REACTIONS (3)
  - MALAISE [None]
  - CEREBROVASCULAR ACCIDENT [None]
  - BALANCE DISORDER [None]
